FAERS Safety Report 16736204 (Version 2)
Quarter: 2019Q3

REPORT INFORMATION
  Report Type: Report from Study
  Country: None (occurrence: BE)
  Receive Date: 20190823
  Receipt Date: 20190905
  Transmission Date: 20191005
  Serious: Yes (Hospitalization)
  Sender: FDA-Public Use
  Company Number: BE-ABBVIE-19P-013-2896272-00

PATIENT
  Age: 78 Year
  Sex: Female
  Weight: 51 kg

DRUGS (20)
  1. RIVOTRIL [Concomitant]
     Active Substance: CLONAZEPAM
     Indication: INSOMNIA
  2. LOSEC [Concomitant]
     Active Substance: OMEPRAZOLE
     Route: 048
     Dates: start: 20190112
  3. DUODOPA [Suspect]
     Active Substance: CARBIDOPA\LEVODOPA
     Route: 050
     Dates: start: 20171120
  4. DUODOPA [Suspect]
     Active Substance: CARBIDOPA\LEVODOPA
     Indication: PARKINSON^S DISEASE
     Dosage: TITRATION MD:12ML; CD: 2.5ML; ED:2ML
     Route: 050
     Dates: start: 20170426, end: 20170428
  5. HYLO COMOD [Concomitant]
     Active Substance: HYALURONATE SODIUM
     Route: 047
     Dates: start: 20190708
  6. ALPRAZOLAM. [Concomitant]
     Active Substance: ALPRAZOLAM
     Dosage: ROUTE: PEG PROBE
     Dates: start: 20190122
  7. L-THYROXINE [Concomitant]
     Active Substance: LEVOTHYROXINE
     Indication: HYPERTHYROIDISM
     Route: 048
     Dates: start: 201301
  8. PROLOPA [Concomitant]
     Active Substance: BENSERAZIDE\LEVODOPA
     Indication: PARKINSON^S DISEASE
     Route: 048
     Dates: start: 20160303
  9. DOMPERIDON [Concomitant]
     Active Substance: DOMPERIDONE
     Indication: IMPAIRED GASTRIC EMPTYING
     Route: 048
     Dates: start: 20190130
  10. RIVOTRIL [Concomitant]
     Active Substance: CLONAZEPAM
     Indication: PANIC REACTION
     Route: 048
     Dates: start: 2016
  11. TRAZODONE [Concomitant]
     Active Substance: TRAZODONE HYDROCHLORIDE
     Indication: INSOMNIA
     Route: 048
  12. DUODOPA [Suspect]
     Active Substance: CARBIDOPA\LEVODOPA
     Route: 050
     Dates: start: 20170428, end: 20171120
  13. ALPRAZOLAM. [Concomitant]
     Active Substance: ALPRAZOLAM
     Indication: NERVOUSNESS
     Route: 048
     Dates: start: 20161027, end: 20190121
  14. MOVICOL [Concomitant]
     Active Substance: POLYETHYLENE GLYCOL 3350\POTASSIUM CHLORIDE\SODIUM BICARBONATE\SODIUM CHLORIDE
     Indication: CONSTIPATION
     Route: 048
     Dates: start: 2017
  15. REMINYL [Concomitant]
     Active Substance: GALANTAMINE
     Indication: COGNITIVE DISORDER
     Route: 048
     Dates: start: 2015
  16. NUTRISON PACK MULTIFIBRE [Concomitant]
     Indication: WEIGHT DECREASED
     Dosage: DOSE: INTESTINAL TROUGH PROBE
     Dates: start: 20190131, end: 20190206
  17. FIBION [Concomitant]
     Indication: CONSTIPATION
     Dosage: DOSE: 1 SPOON IN LIQUID
     Route: 048
     Dates: start: 20180810
  18. LOSEC [Concomitant]
     Active Substance: OMEPRAZOLE
     Indication: GASTROOESOPHAGEAL REFLUX DISEASE
     Route: 048
     Dates: start: 20181212, end: 20190111
  19. NUTRISON PACK MULTIFIBRE [Concomitant]
     Dosage: ROUTE: INTESTINAL TROUGH PROBE
     Dates: start: 20190207
  20. HYLO COMOD [Concomitant]
     Active Substance: HYALURONATE SODIUM
     Indication: EYE IRRITATION
     Route: 047
     Dates: start: 20190707, end: 20190707

REACTIONS (3)
  - Abdominal distension [Recovered/Resolved]
  - Constipation [Recovered/Resolved]
  - Abdominal pain [Recovered/Resolved]

NARRATIVE: CASE EVENT DATE: 20190820
